FAERS Safety Report 14815483 (Version 3)
Quarter: 2019Q2

REPORT INFORMATION
  Report Type: Spontaneous
  Country: US (occurrence: US)
  Receive Date: 20180426
  Receipt Date: 20190617
  Transmission Date: 20190711
  Serious: Yes (Other)
  Sender: FDA-Public Use
  Company Number: US-ASTRAZENECA-2018SE50649

PATIENT
  Sex: Female

DRUGS (13)
  1. NEXIUM [Suspect]
     Active Substance: ESOMEPRAZOLE MAGNESIUM
     Route: 048
  2. PREVACID 24 HR [Suspect]
     Active Substance: LANSOPRAZOLE
     Route: 065
  3. QUETIAPINE. [Concomitant]
     Active Substance: QUETIAPINE
  4. PREVACID [Suspect]
     Active Substance: LANSOPRAZOLE
     Route: 065
  5. DEXILANT [Suspect]
     Active Substance: DEXLANSOPRAZOLE
     Route: 048
  6. DEXILANT [Suspect]
     Active Substance: DEXLANSOPRAZOLE
     Route: 048
     Dates: start: 20160425
  7. ALPRAZOLAM. [Concomitant]
     Active Substance: ALPRAZOLAM
  8. PRILOSEC [Suspect]
     Active Substance: OMEPRAZOLE MAGNESIUM
     Route: 048
  9. PROTONIX [Suspect]
     Active Substance: PANTOPRAZOLE SODIUM
     Route: 048
  10. METHYLPHENIDATE. [Concomitant]
     Active Substance: METHYLPHENIDATE
  11. LOSARTAN. [Concomitant]
     Active Substance: LOSARTAN
  12. NEXIUM 24HR [Suspect]
     Active Substance: ESOMEPRAZOLE MAGNESIUM
     Route: 048
  13. PRILOSEC OTC [Suspect]
     Active Substance: OMEPRAZOLE MAGNESIUM
     Route: 048

REACTIONS (7)
  - Tubulointerstitial nephritis [Unknown]
  - Acute kidney injury [Unknown]
  - Hyperparathyroidism secondary [Unknown]
  - Chronic kidney disease [Unknown]
  - End stage renal disease [Unknown]
  - Renal injury [Unknown]
  - Nephrogenic anaemia [Unknown]
